FAERS Safety Report 5365752-5 (Version None)
Quarter: 2007Q2

REPORT INFORMATION
  Report Type: 
  Country: None (occurrence: None)
  Receive Date: 20070621
  Receipt Date: 20070611
  Transmission Date: 20071010
  Serious: Yes (Hospitalization)
  Sender: FDA-Public Use
  Company Number: US-SANOFI-SYNTHELABO-A03200703823

PATIENT
  Sex: Female
  Weight: 60.8 kg

DRUGS (9)
  1. PROZAC [Concomitant]
     Route: 048
     Dates: start: 20040715, end: 20040725
  2. LISINOPRIL [Concomitant]
     Dosage: UNK
     Route: 048
     Dates: start: 20050502, end: 20050101
  3. PROTONIX [Concomitant]
     Route: 048
     Dates: start: 20050401
  4. LEXAPRO [Concomitant]
     Route: 048
     Dates: start: 20050707
  5. ASPIRIN [Concomitant]
     Route: 048
  6. NORVASC [Concomitant]
     Route: 048
     Dates: end: 20050502
  7. NORVASC [Concomitant]
     Route: 048
     Dates: start: 20050707, end: 20061030
  8. COUMADIN [Concomitant]
     Dosage: 2 TO 3 MG/DAY
     Route: 048
  9. AMBIEN [Suspect]
     Indication: INSOMNIA
     Route: 048
     Dates: start: 20040209

REACTIONS (9)
  - ABNORMAL SLEEP-RELATED EVENT [None]
  - AMNESIA [None]
  - BACK PAIN [None]
  - BALANCE DISORDER [None]
  - CEREBROVASCULAR ACCIDENT [None]
  - DYSURIA [None]
  - HAEMATOMA [None]
  - LETHARGY [None]
  - PHARYNGOLARYNGEAL PAIN [None]
